FAERS Safety Report 7227309-0 (Version None)
Quarter: 2011Q1

REPORT INFORMATION
  Report Type: 
  Country: None (occurrence: None)
  Receive Date: 20110114
  Receipt Date: 20110110
  Transmission Date: 20110831
  Serious: Yes (Disabling)
  Sender: FDA-Public Use
  Company Number: B0692806A

PATIENT
  Age: 42 Year
  Sex: Male
  Weight: 65 kg

DRUGS (1)
  1. IMIGRAN RECOVERY [Suspect]
     Dates: start: 20101213, end: 20101213

REACTIONS (5)
  - HEART RATE IRREGULAR [None]
  - CHEST PAIN [None]
  - DYSPNOEA [None]
  - ASTHENIA [None]
  - RAYNAUD'S PHENOMENON [None]
